FAERS Safety Report 4747175-2 (Version None)
Quarter: 2005Q3

REPORT INFORMATION
  Report Type: 
  Country: None (occurrence: None)
  Receive Date: 20050815
  Receipt Date: 20050401
  Transmission Date: 20060218
  Serious: No
  Sender: FDA-Public Use
  Company Number: MEDI-0003111

PATIENT
  Age: 13 Month
  Sex: Female

DRUGS (4)
  1. SYNAGIS [Suspect]
     Indication: ANTIVIRAL PROPHYLAXIS
     Dosage: 140 MG, 1 IN 30 D, INTRAMUSCULAR;  150 MG, 1 IN 30 D, INTRAMUSCULAR;  150 MG, 1 IN 30 D, INTRAMUSCUL
     Route: 030
     Dates: start: 20041201, end: 20041201
  2. SYNAGIS [Suspect]
     Indication: ANTIVIRAL PROPHYLAXIS
     Dosage: 140 MG, 1 IN 30 D, INTRAMUSCULAR;  150 MG, 1 IN 30 D, INTRAMUSCULAR;  150 MG, 1 IN 30 D, INTRAMUSCUL
     Route: 030
     Dates: start: 20050223, end: 20050223
  3. SYNAGIS [Suspect]
     Indication: ANTIVIRAL PROPHYLAXIS
     Dosage: 140 MG, 1 IN 30 D, INTRAMUSCULAR;  150 MG, 1 IN 30 D, INTRAMUSCULAR;  150 MG, 1 IN 30 D, INTRAMUSCUL
     Route: 030
     Dates: start: 20041229
  4. SYNAGIS [Suspect]
     Indication: ANTIVIRAL PROPHYLAXIS
     Dosage: 140 MG, 1 IN 30 D, INTRAMUSCULAR;  150 MG, 1 IN 30 D, INTRAMUSCULAR;  150 MG, 1 IN 30 D, INTRAMUSCUL
     Route: 030
     Dates: start: 20050126

REACTIONS (7)
  - CYANOSIS [None]
  - HYPERSENSITIVITY [None]
  - INJECTION SITE ERYTHEMA [None]
  - LIVEDO RETICULARIS [None]
  - OEDEMA PERIPHERAL [None]
  - RESPIRATORY DISTRESS [None]
  - WHEEZING [None]
